FAERS Safety Report 7375577-7 (Version None)
Quarter: 2011Q1

REPORT INFORMATION
  Report Type: 
  Country: None (occurrence: None)
  Receive Date: 20110117
  Receipt Date: 20110310
  Transmission Date: 20110831
  Serious: Yes (Death, Hospitalization)
  Sender: FDA-Public Use
  Company Number: 114184

PATIENT
  Age: 28 Year
  Sex: Male

DRUGS (2)
  1. BUPRENORPHINE HCL [Suspect]
     Indication: DELIRIUM
  2. BUPRENORPHINE HCL [Suspect]
     Indication: DEPRESSION

REACTIONS (3)
  - ASPHYXIA [None]
  - LOSS OF CONSCIOUSNESS [None]
  - ASPIRATION [None]
